FAERS Safety Report 7297025-8 (Version None)
Quarter: 2011Q1

REPORT INFORMATION
  Report Type: 
  Country: None (occurrence: None)
  Receive Date: 20110216
  Receipt Date: 20110124
  Transmission Date: 20110831
  Serious: No
  Sender: FDA-Public Use
  Company Number: US-B.I. PHARMACEUTICALS,INC./RIDGEFIELD-2010-BP-13611BP

PATIENT
  Sex: Female

DRUGS (8)
  1. VYTORIN [Concomitant]
     Indication: BLOOD CHOLESTEROL INCREASED
     Dosage: 10/40, 1 X DAY
  2. TRAMADOL [Concomitant]
     Indication: HYPERTENSION
     Dosage: 1 OR 2 A DAY
  3. RAMIPRIL [Concomitant]
     Indication: ATRIAL FIBRILLATION
     Dosage: 10 MG
  4. SOTALOL HCL [Concomitant]
     Indication: ATRIAL FIBRILLATION
  5. ATIVAN [Concomitant]
     Indication: HYPERTENSION
     Dosage: 1 MG
  6. PRADAXA [Suspect]
     Indication: ATRIAL FIBRILLATION
     Dosage: 300 MG
     Route: 048
     Dates: start: 20101101
  7. TOPROL-XL [Concomitant]
     Indication: HYPERTENSION
     Dosage: 25 MEQ
  8. TYLENOL PM [Concomitant]
     Indication: HYPERTENSION
     Dosage: 2 A DAY

REACTIONS (4)
  - PAIN [None]
  - NAUSEA [None]
  - NASOPHARYNGITIS [None]
  - ABDOMINAL PAIN UPPER [None]
